FAERS Safety Report 9310022 (Version 1)
Quarter: 2013Q2

REPORT INFORMATION
  Report Type: Spontaneous
  Country: GR (occurrence: GR)
  Receive Date: 20130527
  Receipt Date: 20130527
  Transmission Date: 20140414
  Serious: Yes (Life-Threatening)
  Sender: FDA-Public Use
  Company Number: GR-BIOGENIDEC-2013BI044465

PATIENT
  Age: 72 Year
  Sex: Male

DRUGS (3)
  1. TYSABRI [Suspect]
     Indication: PRODUCT USED FOR UNKNOWN INDICATION
     Dates: start: 2009, end: 201208
  2. PREZOLON [Concomitant]
  3. MODIODAL [Concomitant]

REACTIONS (1)
  - Encephalitis [Unknown]
